FAERS Safety Report 8934224 (Version 3)
Quarter: 2014Q4

REPORT INFORMATION
  Report Type: Spontaneous
  Country: US (occurrence: US)
  Receive Date: 20121129
  Receipt Date: 20141015
  Transmission Date: 20150529
  Serious: Yes (Hospitalization)
  Sender: FDA-Public Use
  Company Number: US-009507513-1211USA010842

PATIENT
  Sex: Female
  Weight: 106.58 kg

DRUGS (1)
  1. NUVARING [Suspect]
     Active Substance: ETHINYL ESTRADIOL\ETONOGESTREL
     Indication: CONTRACEPTION
     Dosage: UNK
     Route: 067
     Dates: start: 200401

REACTIONS (11)
  - Cellulitis [Unknown]
  - Concussion [Unknown]
  - Generalised anxiety disorder [Unknown]
  - Pityriasis rosea [Unknown]
  - Psoriasis [Unknown]
  - Contusion [Unknown]
  - Thrombosis [Unknown]
  - Deep vein thrombosis [Unknown]
  - Physical assault [Unknown]
  - Nerve compression [Recovering/Resolving]
  - Eczema [Unknown]

NARRATIVE: CASE EVENT DATE: 201203
